FAERS Safety Report 9451046 (Version 1)
Quarter: 2013Q3

REPORT INFORMATION
  Report Type: Spontaneous
  Country: OM (occurrence: None)
  Receive Date: 20130807
  Receipt Date: 20130807
  Transmission Date: 20140515
  Serious: Yes (Death, Other)
  Sender: FDA-Public Use
  Company Number: FK201302912

PATIENT
  Age: 83 Year
  Sex: Female

DRUGS (16)
  1. HEPARIN [Suspect]
     Indication: ATRIAL FIBRILLATION
     Dosage: UNKNOWN, UNKNOWN, INTRAVENOUS (NOT OTHERWISE SPECIFIED)
     Route: 042
  2. TINZAPARIN [Suspect]
     Indication: THROMBOSIS PROPHYLAXIS
  3. ASPIRIN (ACETYLSALICYLIC ACID) [Concomitant]
  4. DIPYRIDAMOLE (DIPYPRIDAMOLE) [Concomitant]
  5. CEFTAZIDIME (CEFTAZIDIME) [Concomitant]
  6. HIGH FLOW OXYGEN (OXYGEN) [Concomitant]
  7. DOPAMINE (DOPAMINE) [Concomitant]
  8. STEROIDS (CORTICOSTEROID NOS) [Concomitant]
  9. METRONIDAZOLE (METRONADAZOLE) [Concomitant]
  10. DIGOXIN (DIGOXIN) [Concomitant]
  11. OMEPRAZOLE (OMEPRAZOLE) [Concomitant]
  12. MEROPENEM (MEROPENEM) [Concomitant]
  13. TAZOCIL (PIP/TAZO) [Concomitant]
  14. AMIKACIN (AMIKACIN) [Concomitant]
  15. INOTROPES (DOBUTAMINE HYDROCHLORIDE) [Concomitant]
  16. FONDAPARINUX (FONADAPARINUX) [Concomitant]

REACTIONS (18)
  - Pneumonia aspiration [None]
  - Respiratory failure [None]
  - Shock [None]
  - Vomiting [None]
  - Heparin-induced thrombocytopenia [None]
  - Melaena [None]
  - Atrial fibrillation [None]
  - Aortic stenosis [None]
  - Aortic calcification [None]
  - Ejection fraction decreased [None]
  - Peripheral ischaemia [None]
  - Hiatus hernia [None]
  - Oesophagitis [None]
  - Gastric ulcer [None]
  - Thrombosis [None]
  - Jugular vein thrombosis [None]
  - Vena cava thrombosis [None]
  - Pulmonary artery thrombosis [None]
